FAERS Safety Report 16672939 (Version 2)
Quarter: 2019Q3

REPORT INFORMATION
  Report Type: Report from Study
  Country: AU (occurrence: AU)
  Receive Date: 20190806
  Receipt Date: 20190808
  Transmission Date: 20191004
  Serious: Yes (Hospitalization, Other)
  Sender: FDA-Public Use
  Company Number: AU-BRISTOL-MYERS SQUIBB COMPANY-BMS-2019-074887

PATIENT
  Age: 70 Year
  Sex: Female
  Weight: 82.8 kg

DRUGS (10)
  1. NIVOLUMAB [Suspect]
     Active Substance: NIVOLUMAB
     Indication: MALIGNANT MELANOMA
     Dosage: 1 DOSAGE FORM, Q2WK
     Route: 065
     Dates: start: 20180601, end: 20181102
  2. DEXAMETHASONE. [Concomitant]
     Active Substance: DEXAMETHASONE
     Indication: METASTASES TO CENTRAL NERVOUS SYSTEM
     Dosage: 2 MILLIGRAM
     Route: 048
     Dates: start: 20190504
  3. NIVOLUMAB [Suspect]
     Active Substance: NIVOLUMAB
     Indication: LUNG NEOPLASM MALIGNANT
     Dosage: 1 DOSAGE FORM, Q2WK
     Route: 065
     Dates: start: 20181116, end: 20190711
  4. CANDESARTAN. [Concomitant]
     Active Substance: CANDESARTAN
     Indication: HYPERTENSION
     Dosage: 32 MILLIGRAM
     Route: 048
     Dates: start: 2010
  5. MAXOLON [Concomitant]
     Active Substance: METOCLOPRAMIDE HYDROCHLORIDE
     Indication: ENDOMETRIAL CANCER
     Dosage: 10 MILLIGRAM
     Route: 048
     Dates: start: 20180601
  6. ROSUVASTATIN. [Concomitant]
     Active Substance: ROSUVASTATIN
     Indication: HYPERCHOLESTEROLAEMIA
     Dosage: 40 MILLIGRAM
     Route: 048
     Dates: start: 2010
  7. NOVOMIX [Concomitant]
     Active Substance: INSULIN ASPART
     Indication: DIABETES MELLITUS
     Dosage: 52 INTERNATIONAL UNIT, BID
     Route: 058
     Dates: start: 20181105
  8. LERCANIDIPINE [Concomitant]
     Active Substance: LERCANIDIPINE
     Indication: HYPERTENSION
     Dosage: 20 MILLIGRAM, BID
     Route: 048
     Dates: start: 2010
  9. PHYSIOTENS [Concomitant]
     Active Substance: MOXONIDINE
     Indication: HYPERTENSION
     Dosage: 400 MICROGRAM
     Route: 048
     Dates: start: 2010
  10. VENTOLIN HFA [Concomitant]
     Active Substance: ALBUTEROL SULFATE
     Indication: COUGH
     Dosage: 1 DOSAGE FORM
     Dates: start: 201808

REACTIONS (2)
  - Dyspnoea [Unknown]
  - Tachypnoea [Unknown]

NARRATIVE: CASE EVENT DATE: 20190725
